FAERS Safety Report 22370789 (Version 1)
Quarter: 2023Q2

REPORT INFORMATION
  Report Type: Spontaneous
  Country: IE (occurrence: IE)
  Receive Date: 20230526
  Receipt Date: 20230526
  Transmission Date: 20230722
  Serious: Yes (Other)
  Sender: FDA-Public Use
  Company Number: None

PATIENT
  Age: 41 Year
  Sex: Female

DRUGS (5)
  1. PREGABALIN [Suspect]
     Active Substance: PREGABALIN
     Indication: Product used for unknown indication
     Dosage: PREGABALIN (G)
     Route: 065
  2. ZOPICLONE [Suspect]
     Active Substance: ZOPICLONE
     Indication: Product used for unknown indication
     Dosage: ZOPICLONE (G)
     Route: 065
  3. METHADONE [Suspect]
     Active Substance: METHADONE HYDROCHLORIDE
     Indication: Dependence
     Dosage: METHADONE  (GENERIC)
     Route: 065
  4. DIAZEPAM [Suspect]
     Active Substance: DIAZEPAM
     Indication: Product used for unknown indication
     Dosage: DIAZEPAM (G)
     Route: 065
  5. AMISULPRIDE [Concomitant]
     Active Substance: AMISULPRIDE
     Indication: Psychotic disorder
     Dosage: AMISULPRIDE (G)

REACTIONS (5)
  - Insomnia [Recovered/Resolved]
  - Dependence [Recovered/Resolved]
  - Hyperhidrosis [Recovered/Resolved]
  - Anxiety [Recovered/Resolved]
  - Depression [Recovered/Resolved]

NARRATIVE: CASE EVENT DATE: 20230101
